FAERS Safety Report 5451044-2 (Version None)
Quarter: 2007Q3

REPORT INFORMATION
  Report Type: 
  Country: None (occurrence: None)
  Receive Date: 20070801
  Receipt Date: 20060901
  Transmission Date: 20080115
  Serious: Yes (Hospitalization)
  Sender: FDA-Public Use
  Company Number: US-JNJFOC-20060900027

PATIENT
  Age: 8 Year
  Sex: Male

DRUGS (2)
  1. CHILDREN'S MOTRIN [Suspect]
     Indication: COUGH
     Dosage: ^RECOMMENDED DOSAGE^ AS NECESSARY
     Dates: start: 20060801
  2. CHILDREN'S MOTRIN [Suspect]
     Indication: PYREXIA
     Dosage: ^RECOMMENDED DOSAGE^ AS NECESSARY
     Dates: start: 20060801

REACTIONS (1)
  - STEVENS-JOHNSON SYNDROME [None]
